FAERS Safety Report 7902575-4 (Version None)
Quarter: 2011Q4

REPORT INFORMATION
  Report Type: 
  Country: None (occurrence: None)
  Receive Date: 20111108
  Receipt Date: 20111024
  Transmission Date: 20120403
  Serious: Yes (Other)
  Sender: FDA-Public Use
  Company Number: JP-WATSON-2011-18444

PATIENT
  Age: 56 Year
  Sex: Male

DRUGS (2)
  1. CARBOPLATIN [Suspect]
     Indication: THYMOMA MALIGNANT
     Dosage: CARBOPLATIN 6 AUC
     Route: 065
  2. PACLITAXEL [Suspect]
     Indication: THYMOMA MALIGNANT
     Dosage: 200 MG/M2, THEN 150 MG/M2
     Route: 065

REACTIONS (5)
  - NEUTROPENIA [None]
  - ANAEMIA [None]
  - FATIGUE [None]
  - CONSTIPATION [None]
  - LEUKOPENIA [None]
